FAERS Safety Report 21316236 (Version 1)
Quarter: 2022Q3

REPORT INFORMATION
  Report Type: Spontaneous
  Country: BR (occurrence: BR)
  Receive Date: 20220910
  Receipt Date: 20220910
  Transmission Date: 20221027
  Serious: Yes (Other)
  Sender: FDA-Public Use
  Company Number: BR-NOVARTISPH-NVSC2022BR204680

PATIENT
  Sex: Male
  Weight: 60 kg

DRUGS (1)
  1. ELTROMBOPAG OLAMINE [Suspect]
     Active Substance: ELTROMBOPAG OLAMINE
     Indication: Immune thrombocytopenia
     Dosage: 1 DOSAGE FORM, QD
     Route: 065
     Dates: start: 201901

REACTIONS (6)
  - Platelet count decreased [Recovering/Resolving]
  - Tonsillitis [Unknown]
  - Conjunctivitis [Unknown]
  - Fatigue [Unknown]
  - Anaemia [Unknown]
  - Nasopharyngitis [Unknown]
